FAERS Safety Report 6473057-4 (Version None)
Quarter: 2009Q4

REPORT INFORMATION
  Report Type: 
  Country: None (occurrence: None)
  Receive Date: 20091204
  Receipt Date: 20091123
  Transmission Date: 20100525
  Serious: Yes (Hospitalization)
  Sender: FDA-Public Use
  Company Number: US-JNJFOC-20091107172

PATIENT
  Sex: Female
  Weight: 61.24 kg

DRUGS (1)
  1. REMICADE [Suspect]
     Indication: COLITIS ULCERATIVE
     Route: 042

REACTIONS (3)
  - HYPERSENSITIVITY [None]
  - JOINT EFFUSION [None]
  - JOINT SWELLING [None]
